FAERS Safety Report 6653972-9 (Version None)
Quarter: 2010Q1

REPORT INFORMATION
  Report Type: 
  Country: None (occurrence: None)
  Receive Date: 20100326
  Receipt Date: 20100318
  Transmission Date: 20100710
  Serious: Yes (Other)
  Sender: FDA-Public Use
  Company Number: AR-JNJFOC-20100305709

PATIENT
  Sex: Male
  Weight: 40 kg

DRUGS (1)
  1. IBUPIRAC 2% [Suspect]
     Indication: HEADACHE
     Route: 048

REACTIONS (2)
  - HEPATITIS [None]
  - PRODUCT CONTAMINATION MICROBIAL [None]
